FAERS Safety Report 18652996 (Version 4)
Quarter: 2022Q2

REPORT INFORMATION
  Report Type: Report from Study
  Country: US (occurrence: US)
  Receive Date: 20201223
  Receipt Date: 20220523
  Transmission Date: 20220721
  Serious: Yes (Other)
  Sender: FDA-Public Use
  Company Number: US-SHIRE-US202026675

PATIENT
  Age: 58 Year
  Sex: Female

DRUGS (1)
  1. HUMAN IMMUNOGLOBULIN G\HYALURONIDASE RECOMBINANT HUMAN [Suspect]
     Active Substance: HUMAN IMMUNOGLOBULIN G\HYALURONIDASE RECOMBINANT HUMAN
     Indication: Immunodeficiency common variable
     Dosage: UNK
     Route: 065

REACTIONS (18)
  - Crohn^s disease [Unknown]
  - Hip fracture [Unknown]
  - Rheumatoid arthritis [Unknown]
  - Pneumonia [Recovered/Resolved]
  - Fall [Unknown]
  - Wrist fracture [Unknown]
  - Impaired healing [Unknown]
  - Osteoporosis [Unknown]
  - Unevaluable event [Unknown]
  - Impaired healing [Unknown]
  - Vein disorder [Unknown]
  - Bronchitis [Unknown]
  - Venous occlusion [Unknown]
  - Blood immunoglobulin G decreased [Unknown]
  - Sinusitis [Recovered/Resolved]
  - Depressed mood [Unknown]
  - Stress [Unknown]
  - Abdominal distension [Unknown]

NARRATIVE: CASE EVENT DATE: 20200401
